FAERS Safety Report 13976944 (Version 1)
Quarter: 2017Q3

REPORT INFORMATION
  Report Type: Spontaneous
  Country: JP (occurrence: JP)
  Receive Date: 20170915
  Receipt Date: 20170915
  Transmission Date: 20171128
  Serious: Yes (Hospitalization)
  Sender: FDA-Public Use
  Company Number: JP-TEVA-805079ROM

PATIENT
  Age: 17 Month
  Sex: Female

DRUGS (4)
  1. PRANLUKAST [Suspect]
     Active Substance: PRANLUKAST
     Indication: COUGH
     Route: 065
  2. AZITHROMYCIN ANHYDROUS. [Suspect]
     Active Substance: AZITHROMYCIN ANHYDROUS
     Indication: COUGH
     Route: 065
  3. PRANLUKAST [Suspect]
     Active Substance: PRANLUKAST
     Indication: PYREXIA
     Route: 065
  4. AZITHROMYCIN ANHYDROUS. [Suspect]
     Active Substance: AZITHROMYCIN ANHYDROUS
     Indication: PYREXIA
     Route: 065

REACTIONS (5)
  - Infection reactivation [Recovered/Resolved]
  - Multiple organ dysfunction syndrome [Recovered/Resolved]
  - BK virus infection [Recovered/Resolved]
  - Cytomegalovirus infection [Recovered/Resolved]
  - Drug reaction with eosinophilia and systemic symptoms [Recovering/Resolving]
